FAERS Safety Report 8214242-0 (Version None)
Quarter: 2012Q1

REPORT INFORMATION
  Report Type: 
  Country: None (occurrence: None)
  Receive Date: 20120316
  Receipt Date: 20120305
  Transmission Date: 20120608
  Serious: Yes (Other)
  Sender: FDA-Public Use
  Company Number: US-JNJFOC-20120302769

PATIENT
  Sex: Female
  Weight: 79.38 kg

DRUGS (3)
  1. METHOTREXATE [Concomitant]
     Indication: COLITIS ULCERATIVE
     Route: 065
  2. PREDNISONE TAB [Concomitant]
     Indication: COLITIS ULCERATIVE
     Route: 048
  3. REMICADE [Suspect]
     Indication: COLITIS ULCERATIVE
     Route: 042

REACTIONS (4)
  - ABNORMAL LOSS OF WEIGHT [None]
  - SOMNOLENCE [None]
  - COLITIS ULCERATIVE [None]
  - FATIGUE [None]
